FAERS Safety Report 9491099 (Version 2)
Quarter: 2013Q3

REPORT INFORMATION
  Report Type: Report from Study
  Country: CA (occurrence: CA)
  Receive Date: 20130830
  Receipt Date: 20130902
  Transmission Date: 20140515
  Serious: Yes (Hospitalization)
  Sender: FDA-Public Use
  Company Number: CA-JNJFOC-20130816719

PATIENT
  Age: 63 Year
  Sex: Male
  Weight: 94 kg

DRUGS (12)
  1. REMICADE [Suspect]
     Indication: RHEUMATOID ARTHRITIS
     Route: 042
     Dates: start: 20100707
  2. PERINDOPRIL [Concomitant]
     Route: 065
  3. ATORVASTATIN [Concomitant]
     Route: 065
  4. METOPROLOL [Concomitant]
     Route: 065
  5. ASA [Concomitant]
     Route: 065
  6. BROMAZEPAM [Concomitant]
     Route: 065
  7. ESCITALOPRAM [Concomitant]
     Route: 065
  8. FOLIC ACID [Concomitant]
     Route: 065
  9. METHOTREXATE [Concomitant]
     Route: 065
  10. PANTOLOC [Concomitant]
     Route: 065
  11. OXYCOCET [Concomitant]
     Dosage: 1 TABLET
     Route: 065
  12. NITRO SPRAY [Concomitant]
     Dosage: ONE SPRAY EVERY 5 MIN TO??MAX OF 3 SPRAYS
     Route: 065

REACTIONS (1)
  - Acute myocardial infarction [Recovered/Resolved]
